FAERS Safety Report 12556317 (Version 1)
Quarter: 2016Q3

REPORT INFORMATION
  Report Type: Spontaneous
  Country: ZA (occurrence: ZA)
  Receive Date: 20160714
  Receipt Date: 20160714
  Transmission Date: 20161109
  Serious: Yes (Death)
  Sender: FDA-Public Use
  Company Number: ZA-FRESENIUS KABI-FK201604329

PATIENT
  Age: 1 Year
  Sex: Male

DRUGS (1)
  1. PROPRANOLOL HYDROCHLORIDE (MANUFACTURER UNKNOWN) [Suspect]
     Active Substance: PROPRANOLOL HYDROCHLORIDE
     Indication: THERMAL BURN
     Route: 065

REACTIONS (2)
  - Intestinal ischaemia [Fatal]
  - Product use issue [Fatal]
